FAERS Safety Report 9168688 (Version 1)
Quarter: 2013Q1

REPORT INFORMATION
  Report Type: Spontaneous
  Country: RU (occurrence: RU)
  Receive Date: 20130318
  Receipt Date: 20130318
  Transmission Date: 20140127
  Serious: Yes (Death)
  Sender: FDA-Public Use
  Company Number: RU-ASTRAZENECA-2013SE16803

PATIENT
  Age: 55 Year
  Sex: Male

DRUGS (10)
  1. BETALOC ZOK [Suspect]
     Indication: ESSENTIAL HYPERTENSION
     Route: 048
     Dates: start: 201302
  2. BETALOC ZOK [Suspect]
     Indication: ATRIAL FIBRILLATION
     Route: 048
     Dates: start: 201302
  3. BETALOC ZOK [Suspect]
     Indication: ESSENTIAL HYPERTENSION
     Route: 048
  4. BETALOC ZOK [Suspect]
     Indication: ATRIAL FIBRILLATION
     Route: 048
  5. CARDIOMAGNYL [Concomitant]
     Indication: ESSENTIAL HYPERTENSION
     Route: 048
     Dates: start: 201302
  6. CARDIOMAGNYL [Concomitant]
     Indication: ATRIAL FIBRILLATION
     Route: 048
     Dates: start: 201302
  7. VERAPAMIL [Concomitant]
     Indication: ESSENTIAL HYPERTENSION
     Route: 048
     Dates: start: 201302
  8. VERAPAMIL [Concomitant]
     Indication: ATRIAL FIBRILLATION
     Route: 048
     Dates: start: 201302
  9. ACE INHIBITORS (NOT SPECIFIED) [Concomitant]
     Indication: ESSENTIAL HYPERTENSION
     Route: 048
     Dates: start: 201302
  10. ACE INHIBITORS (NOT SPECIFIED) [Concomitant]
     Indication: ATRIAL FIBRILLATION
     Route: 048
     Dates: start: 201302

REACTIONS (3)
  - Essential hypertension [Fatal]
  - Pulmonary embolism [Fatal]
  - Renal artery thrombosis [Fatal]
